FAERS Safety Report 9789925 (Version 1)
Quarter: 2013Q4

REPORT INFORMATION
  Report Type: Spontaneous
  Country: US (occurrence: None)
  Receive Date: 20131230
  Receipt Date: 20131230
  Transmission Date: 20140711
  Serious: Yes (Other)
  Sender: FDA-Public Use
  Company Number: None

PATIENT
  Age: 64 Year
  Sex: Female
  Weight: 73.48 kg

DRUGS (1)
  1. BUPROPION HYDROCHLORIDE EXTENDED RELEASE (XL) [Suspect]
     Indication: ANXIETY
     Dosage: TAKEN BY MOUTH
     Dates: start: 20131120, end: 20131224

REACTIONS (5)
  - Rash [None]
  - Urticaria [None]
  - Rash [None]
  - Cheilitis [None]
  - Pain [None]
